FAERS Safety Report 6712218-3 (Version None)
Quarter: 2010Q2

REPORT INFORMATION
  Report Type: 
  Country: None (occurrence: None)
  Receive Date: 20100505
  Receipt Date: 20100426
  Transmission Date: 20101027
  Serious: Yes (Hospitalization)
  Sender: FDA-Public Use
  Company Number: US-ABBOTT-10P-163-0640681-00

PATIENT
  Sex: Female
  Weight: 69.462 kg

DRUGS (4)
  1. SYNTHROID [Suspect]
     Indication: HYPOTHYROIDISM
     Dates: start: 20000101
  2. SYNTHROID [Suspect]
  3. LEXAPRO [Concomitant]
     Indication: DEPRESSION
     Dates: start: 20080101
  4. ZYRTEC [Concomitant]
     Indication: HYPERSENSITIVITY

REACTIONS (5)
  - FATIGUE [None]
  - GENERALISED OEDEMA [None]
  - HYPOACUSIS [None]
  - MALAISE [None]
  - WEIGHT LOSS POOR [None]
